FAERS Safety Report 4916653-5 (Version None)
Quarter: 2006Q1

REPORT INFORMATION
  Report Type: 
  Country: None (occurrence: None)
  Receive Date: 20060220
  Receipt Date: 20060215
  Transmission Date: 20060701
  Serious: Yes (Hospitalization)
  Sender: FDA-Public Use
  Company Number: 2006CG00329

PATIENT
  Age: 67 Year
  Sex: Male

DRUGS (1)
  1. XYLOCAINE [Suspect]
     Indication: LOCAL ANAESTHESIA
     Route: 007
     Dates: start: 20060116, end: 20060116

REACTIONS (4)
  - DISORIENTATION [None]
  - MALAISE [None]
  - NAUSEA [None]
  - TREMOR [None]
